FAERS Safety Report 8548360-4 (Version None)
Quarter: 2012Q3

REPORT INFORMATION
  Report Type: 
  Country: None (occurrence: None)
  Receive Date: 20120730
  Receipt Date: 20120725
  Transmission Date: 20120928
  Serious: Yes (Death, Hospitalization)
  Sender: FDA-Public Use
  Company Number: KR-JNJFOC-20120707398

PATIENT
  Age: 60 Year
  Sex: Female

DRUGS (4)
  1. DORIPENEM MONOHYDRATE [Suspect]
     Indication: PNEUMONIA
     Route: 041
  2. TEICOPLANIN [Suspect]
     Indication: PNEUMONIA
     Route: 065
  3. ERTAPENEM [Suspect]
     Indication: URINARY TRACT INFECTION
     Route: 065
  4. CIPROFLAXACIN [Suspect]
     Indication: URINARY TRACT INFECTION
     Route: 065

REACTIONS (1)
  - PNEUMONIA [None]
